FAERS Safety Report 9076335 (Version 1)
Quarter: 2013Q1

REPORT INFORMATION
  Report Type: Spontaneous
  Country: US (occurrence: US)
  Receive Date: 20130129
  Receipt Date: 20130129
  Transmission Date: 20140127
  Serious: No
  Sender: FDA-Public Use
  Company Number: US-ABBOTT-12P-163-0903654-00

PATIENT
  Age: 48 None
  Sex: Female
  Weight: 69.92 kg

DRUGS (7)
  1. HUMIRA 40 MG/0.8 ML PEN [Suspect]
     Indication: CROHN^S DISEASE
     Route: 058
     Dates: start: 20120120, end: 20120120
  2. HUMIRA 40 MG/0.8 ML PEN [Suspect]
     Route: 058
     Dates: start: 20120203, end: 20120203
  3. SINGULAIR [Concomitant]
     Indication: ASTHMA
  4. COMBIVENT [Concomitant]
     Indication: ASTHMA
  5. ALBUTEROL [Concomitant]
     Indication: ASTHMA
  6. ALBUTEROL [Concomitant]
     Dosage: NEBULIZER
  7. TRAMADOL [Concomitant]
     Indication: ABDOMINAL PAIN

REACTIONS (1)
  - Nausea [Not Recovered/Not Resolved]
